FAERS Safety Report 13383770 (Version 1)
Quarter: 2017Q1

REPORT INFORMATION
  Report Type: Spontaneous
  Country: US (occurrence: US)
  Receive Date: 20170329
  Receipt Date: 20170329
  Transmission Date: 20170429
  Serious: Yes (Hospitalization)
  Sender: FDA-Public Use
  Company Number: US-BAYER-2016-180403

PATIENT
  Age: 57 Year
  Sex: Male

DRUGS (7)
  1. XARELTO [Suspect]
     Active Substance: RIVAROXABAN
     Indication: CARDIAC DISORDER
     Dosage: 20 MG, QD
     Route: 048
     Dates: start: 20130403, end: 20130923
  2. IBUPROFEN [IBUPROFEN] [Suspect]
     Active Substance: IBUPROFEN
     Indication: ARTHRALGIA
     Dosage: UNK
     Route: 048
  3. ACETYLSALICYLIC ACID({=100 MG) [Suspect]
     Active Substance: ASPIRIN
     Indication: DEEP VEIN THROMBOSIS
     Dosage: 81 MG, QD
  4. ACETYLSALICYLIC ACID({=100 MG) [Suspect]
     Active Substance: ASPIRIN
     Indication: CARDIAC DISORDER
  5. XARELTO [Suspect]
     Active Substance: RIVAROXABAN
     Indication: DEEP VEIN THROMBOSIS
  6. CLOPIDOGREL BISULFATE. [Suspect]
     Active Substance: CLOPIDOGREL BISULFATE
     Indication: DEEP VEIN THROMBOSIS
     Dosage: 75 MG, QD
     Route: 048
  7. CLOPIDOGREL BISULFATE. [Suspect]
     Active Substance: CLOPIDOGREL BISULFATE
     Indication: CARDIAC DISORDER

REACTIONS (1)
  - Gastrointestinal haemorrhage [Unknown]

NARRATIVE: CASE EVENT DATE: 20130923
